FAERS Safety Report 24988317 (Version 2)
Quarter: 2025Q3

REPORT INFORMATION
  Report Type: Report from Study
  Country: US (occurrence: US)
  Receive Date: 20250220
  Receipt Date: 20250803
  Transmission Date: 20251021
  Serious: Yes (Other)
  Sender: ALEXION PHARMACEUTICALS
  Company Number: US-AstraZeneca-CH-00807154A

PATIENT
  Sex: Male

DRUGS (3)
  1. ULTOMIRIS [Suspect]
     Active Substance: RAVULIZUMAB-CWVZ
     Route: 065
  2. FABHALTA [Concomitant]
     Active Substance: IPTACOPAN HYDROCHLORIDE
     Route: 065
  3. EMPAVELI [Concomitant]
     Active Substance: PEGCETACOPLAN
     Route: 065

REACTIONS (6)
  - Breakthrough haemolysis [Unknown]
  - Memory impairment [Unknown]
  - Physical disability [Unknown]
  - Fatigue [Unknown]
  - Blood pressure increased [Unknown]
  - Feeling abnormal [Unknown]
